FAERS Safety Report 8322451-5 (Version None)
Quarter: 2012Q2

REPORT INFORMATION
  Report Type: 
  Country: None (occurrence: None)
  Receive Date: 20120426
  Receipt Date: 20120409
  Transmission Date: 20120825
  Serious: Yes (Death)
  Sender: FDA-Public Use
  Company Number: ADR-2012-00652

PATIENT
  Sex: Female

DRUGS (2)
  1. LIORESAL [Suspect]
     Dosage: 2000MCG/ML 49.97MCG/DAY
     Route: 037
  2. LIORESAL [Concomitant]

REACTIONS (5)
  - CEREBROVASCULAR DISORDER [None]
  - HYPERTENSION [None]
  - CARDIAC DISORDER [None]
  - ATRIAL FIBRILLATION [None]
  - CHRONIC RESPIRATORY FAILURE [None]
